FAERS Safety Report 13982139 (Version 1)
Quarter: 2017Q3

REPORT INFORMATION
  Report Type: Spontaneous
  Country: JP (occurrence: JP)
  Receive Date: 20170918
  Receipt Date: 20170918
  Transmission Date: 20171128
  Serious: Yes (Hospitalization)
  Sender: FDA-Public Use
  Company Number: PHJP2017JP026922

PATIENT
  Age: 90 Year
  Sex: Female

DRUGS (3)
  1. EXELON PATCH [Suspect]
     Active Substance: RIVASTIGMINE
     Dosage: 9.5 MG, QD (PATCH 10, RIVASTIGMINE BASE 18 MG)
     Route: 062
     Dates: start: 20170830
  2. EXELON PATCH [Suspect]
     Active Substance: RIVASTIGMINE
     Indication: DEMENTIA ALZHEIMER^S TYPE
     Dosage: 9.5 MG QD (PATCH 10 (CM2), 18 MG RIVASTIGMINE BASE)
     Route: 062
     Dates: end: 20170823
  3. EXELON PATCH [Suspect]
     Active Substance: RIVASTIGMINE
     Dosage: 13.8 MG, QD  (2 PATCHES OF PATCH 7.5 (CM2), 13.5 MG RIVASTIGMINE BASE)
     Route: 062
     Dates: start: 20170824, end: 20170829

REACTIONS (3)
  - Overdose [Recovered/Resolved]
  - Wrong technique in product usage process [Recovered/Resolved]
  - Pneumonia [Recovered/Resolved]

NARRATIVE: CASE EVENT DATE: 20170715
